FAERS Safety Report 6177746-0 (Version None)
Quarter: 2009Q2

REPORT INFORMATION
  Report Type: 
  Country: None (occurrence: None)
  Receive Date: 20090501
  Receipt Date: 20090501
  Transmission Date: 20091009
  Serious: Yes (Other)
  Sender: FDA-Public Use
  Company Number: None

PATIENT
  Sex: Male

DRUGS (1)
  1. HYDROCHLOROTHIAZIDE 25MG TAB [Suspect]
     Indication: HYPERTENSION
     Dosage: 25MG ONCE DAILY PO
     Route: 048
     Dates: start: 20090302, end: 20090430

REACTIONS (2)
  - BLOOD PRESSURE SYSTOLIC INCREASED [None]
  - PRODUCT QUALITY ISSUE [None]
